FAERS Safety Report 8246300-9 (Version None)
Quarter: 2012Q1

REPORT INFORMATION
  Report Type: 
  Country: None (occurrence: None)
  Receive Date: 20120330
  Receipt Date: 20120321
  Transmission Date: 20120608
  Serious: Yes (Death, Other)
  Sender: FDA-Public Use
  Company Number: US-BAYER-2012-029333

PATIENT
  Age: 50 Year
  Sex: Female
  Weight: 43 kg

DRUGS (18)
  1. ASPIRIN [Concomitant]
     Dosage: DAILY DOSE 81 MG
  2. ENALAPRIL [Concomitant]
     Dosage: 10 MG, BID
  3. HYDROCORTISONE [Suspect]
     Dosage: 1 GM
     Route: 042
  4. APROTININ [Suspect]
     Dosage: 2000000 KIU, LOADING DOSE
     Route: 042
  5. LEVOTHYROXINE SODIUM [Concomitant]
     Dosage: DAILY DOSE .25 MG
  6. DOBUTAMINE HCL [Concomitant]
     Dosage: 5 ?G/KG, Q1MIN
  7. APROTININ [Suspect]
     Indication: HAEMORRHAGE PROPHYLAXIS
     Dosage: TEST DOSE
  8. VECURONIUM BROMIDE [Concomitant]
     Indication: ANAESTHESIA
  9. HEPARIN [Concomitant]
     Dosage: 400 U/KG
  10. PROTAMINE SULFATE [Concomitant]
     Dosage: 1.3 MG/100 IU HEPARIN
  11. APROTININ [Suspect]
     Dosage: 500000 KIU/H DURING PROCEDURE
     Route: 042
  12. APROTININ [Suspect]
     Dosage: 2000000 KIU, INTO CPB CIRCUIT
     Route: 042
  13. WARFARIN SODIUM [Suspect]
     Dosage: 2.5 MG, QOD
  14. RED BLOOD CELLS [Concomitant]
     Dosage: 4 U, UNK
  15. DIGOXIN [Concomitant]
     Dosage: DAILY DOSE .25 MG
  16. MIDAZOLAM [Concomitant]
     Indication: ANAESTHESIA
  17. FENTANYL [Concomitant]
     Indication: ANAESTHESIA
  18. FLUOXETINE [Concomitant]
     Dosage: DAILY DOSE 20 MG

REACTIONS (6)
  - HYPOTENSION [None]
  - CARDIAC ARREST [None]
  - PULMONARY HYPERTENSION [None]
  - THROMBOSIS IN DEVICE [None]
  - RIGHT VENTRICULAR FAILURE [None]
  - INTRACARDIAC THROMBUS [None]
